FAERS Safety Report 8846555 (Version 3)
Quarter: 2012Q4

REPORT INFORMATION
  Report Type: 
  Country: JP (occurrence: JP)
  Receive Date: 20121017
  Receipt Date: 20121128
  Transmission Date: 20130627
  Serious: Yes (Life-Threatening, Hospitalization)
  Sender: FDA-Public Use
  Company Number: JP-GLAXOSMITHKLINE-B0837950A

PATIENT
  Age: 88 Year
  Sex: Female

DRUGS (2)
  1. VALTREX [Suspect]
     Indication: HERPES ZOSTER
     Dosage: 1000MG Three times per day
     Route: 048
     Dates: start: 20120926, end: 20121002
  2. FENAZOL [Concomitant]

REACTIONS (12)
  - Renal impairment [Recovered/Resolved]
  - Renal failure acute [Recovering/Resolving]
  - Asthenia [Unknown]
  - Malaise [Unknown]
  - Thirst [Unknown]
  - Pain [Unknown]
  - Blood urea increased [Unknown]
  - Blood creatinine increased [Unknown]
  - Blood uric acid increased [Unknown]
  - Blood lactate dehydrogenase increased [Unknown]
  - Blood potassium increased [Unknown]
  - C-reactive protein increased [Unknown]
